FAERS Safety Report 5112653-3 (Version None)
Quarter: 2006Q3

REPORT INFORMATION
  Report Type: 
  Country: None (occurrence: None)
  Receive Date: 20060802
  Receipt Date: 20060510
  Transmission Date: 20061208
  Serious: No
  Sender: FDA-Public Use
  Company Number: 200614316US

PATIENT
  Age: 46 Year
  Sex: Female

DRUGS (1)
  1. KETEK [Suspect]
     Indication: SINUSITIS
     Dosage: 400 MG QD
     Dates: start: 20060509, end: 20060509

REACTIONS (2)
  - DIZZINESS [None]
  - HEADACHE [None]
